FAERS Safety Report 22306634 (Version 2)
Quarter: 2024Q2

REPORT INFORMATION
  Report Type: Spontaneous
  Country: CA (occurrence: CA)
  Receive Date: 20230511
  Receipt Date: 20240619
  Transmission Date: 20240716
  Serious: Yes (Hospitalization, Other)
  Sender: FDA-Public Use
  Company Number: CA-CHEPLA-2023005438

PATIENT
  Age: 71 Year
  Sex: Female
  Weight: 69 kg

DRUGS (34)
  1. ASPIRIN [Suspect]
     Active Substance: ASPIRIN
     Dosage: UNK
  2. AMOXICILLIN TRIHYDRATE [Suspect]
     Active Substance: AMOXICILLIN
     Dosage: UNK
  3. ATORVASTATIN CALCIUM [Suspect]
     Active Substance: ATORVASTATIN CALCIUM
     Dosage: UNK
  4. ALPRAZOLAM [Suspect]
     Active Substance: ALPRAZOLAM
     Dosage: 0.25 MG
  5. AZITHROMYCIN [Suspect]
     Active Substance: AZITHROMYCIN
     Dosage: UNK
  6. BISACODYL [Suspect]
     Active Substance: BISACODYL
     Dosage: UNK
  7. CLARITHROMYCIN [Suspect]
     Active Substance: CLARITHROMYCIN
     Dosage: UNK
  8. CIPROFLOXACIN HYDROCHLORIDE [Suspect]
     Active Substance: CIPROFLOXACIN HYDROCHLORIDE
     Dosage: UNK
  9. CLOTRIMAZOLE [Suspect]
     Active Substance: CLOTRIMAZOLE
     Dosage: UNK
  10. DESONIDE [Suspect]
     Active Substance: DESONIDE
     Dosage: UNK
  11. CETIRIZINE HYDROCHLORIDE [Suspect]
     Active Substance: CETIRIZINE HYDROCHLORIDE
     Dosage: UNK
  12. DIPHENHYDRAMINE HYDROCHLORIDE [Suspect]
     Active Substance: DIPHENHYDRAMINE HYDROCHLORIDE
     Dosage: UNK
  13. GLYCERIN [Suspect]
     Active Substance: GLYCERIN
     Dosage: UNK
  14. FLUTICASONE FUROATE [Suspect]
     Active Substance: FLUTICASONE FUROATE
     Dosage: UNK
  15. FLUCONAZOLE [Suspect]
     Active Substance: FLUCONAZOLE
  16. NITROGLYCERIN [Suspect]
     Active Substance: NITROGLYCERIN
     Dosage: UNK
  17. HYDROCHLOROTHIAZIDE [Suspect]
     Active Substance: HYDROCHLOROTHIAZIDE
  18. ZOPICLONE [Suspect]
     Active Substance: ZOPICLONE
  19. LOPERAMIDE HYDROCHLORIDE [Suspect]
     Active Substance: LOPERAMIDE HYDROCHLORIDE
     Dosage: 1 DOSAGE FORM X 4 PER 1 DAYS
     Route: 048
  20. HYDROCORTISONE [Suspect]
     Active Substance: HYDROCORTISONE\HYDROCORTISONE ACETATE
  21. MAGNESIUM OXIDE [Suspect]
     Active Substance: MAGNESIUM OXIDE
     Dosage: UNK
  22. BETAMETHASONE VALERATE [Suspect]
     Active Substance: BETAMETHASONE VALERATE
     Dosage: 0.122 G
  23. METRONIDAZOLE [Suspect]
     Active Substance: METRONIDAZOLE
  24. MIDAZOLAM [Suspect]
     Active Substance: MIDAZOLAM
  25. NADOLOL [Suspect]
     Active Substance: NADOLOL
     Dosage: UNK
  26. NICODERM CQ [Suspect]
     Active Substance: NICOTINE
  27. NICOTINE [Suspect]
     Active Substance: NICOTINE
  28. OXYBUTYNIN CHLORIDE [Suspect]
     Active Substance: OXYBUTYNIN CHLORIDE
  29. PANTOPRAZOLE [Suspect]
     Active Substance: PANTOPRAZOLE
  30. PREDNISONE [Suspect]
     Active Substance: PREDNISONE
  31. PYRIDOXINE [Suspect]
     Active Substance: PYRIDOXINE
  32. SUCRALFATE [Suspect]
     Active Substance: SUCRALFATE
  33. TRIAMCINOLONE ACETONIDE [Suspect]
     Active Substance: TRIAMCINOLONE ACETONIDE
     Dosage: SUSPENSION FOR INFUSION
  34. UBIDECARENONE [Suspect]
     Active Substance: UBIDECARENONE

REACTIONS (1)
  - Chronic sinusitis [Unknown]
